FAERS Safety Report 4688069-0 (Version None)
Quarter: 2005Q2

REPORT INFORMATION
  Report Type: 
  Country: None (occurrence: None)
  Receive Date: 20050610
  Receipt Date: 20050606
  Transmission Date: 20051028
  Serious: Yes (Life-Threatening, Hospitalization)
  Sender: FDA-Public Use
  Company Number: GB-ROCHE-406831

PATIENT
  Age: 57 Year
  Weight: 92 kg

DRUGS (6)
  1. XELODA [Suspect]
     Dosage: PATIENT ON 5TH CYCLE
     Route: 048
     Dates: start: 20050115
  2. ENALAPRIL MALEATE [Suspect]
     Route: 048
     Dates: start: 19930615, end: 20050411
  3. METOCLOPRAMIDE [Concomitant]
     Indication: CHEMOTHERAPY
     Dosage: TAKEN PRN
     Route: 048
     Dates: start: 20050115
  4. BENDROFLUMETHIAZIDE [Concomitant]
     Route: 048
     Dates: start: 19930615
  5. ASPIRIN [Concomitant]
     Route: 048
     Dates: start: 19970615
  6. TIMOLOL MALEATE [Concomitant]
     Route: 061
     Dates: start: 19950615

REACTIONS (3)
  - ANAPHYLACTIC REACTION [None]
  - ANGIONEUROTIC OEDEMA [None]
  - SWOLLEN TONGUE [None]
